FAERS Safety Report 8246143-6 (Version None)
Quarter: 2012Q1

REPORT INFORMATION
  Report Type: 
  Country: None (occurrence: None)
  Receive Date: 20120330
  Receipt Date: 20120327
  Transmission Date: 20120608
  Serious: Yes (Death, Other)
  Sender: FDA-Public Use
  Company Number: PHEH2012US003233

PATIENT
  Sex: Female
  Weight: 62.6 kg

DRUGS (24)
  1. DEXAMETHASONE [Concomitant]
     Dosage: 5 DF, THE NIGHT BEFORE CHEMOTHERAPY
     Dates: start: 20110615
  2. ESTRADIOL [Concomitant]
     Dosage: 1 DF, QW2
     Dates: start: 20110604
  3. TAXOL [Concomitant]
     Route: 042
     Dates: start: 20110629, end: 20110629
  4. ZOFRAN [Concomitant]
     Dosage: 32 MG, ONCE/SINGLE
     Dates: start: 20110629, end: 20110629
  5. PROCHLORPERAZINE [Concomitant]
     Indication: NAUSEA
     Dosage: 1 DF, TID AS NEEDED
     Dates: start: 20110615
  6. NORCO [Concomitant]
     Indication: PAIN
     Dosage: 1 DF, Q4H
     Dates: start: 20110606
  7. ENALAPRIL MALEATE [Concomitant]
     Dosage: 1 DF, DAILY
  8. SOLU-CORTEF [Concomitant]
     Route: 042
     Dates: start: 20110629, end: 20110629
  9. CHEMOTHERAPEUTICS [Concomitant]
  10. EPIPEN [Concomitant]
     Route: 058
     Dates: start: 20110629, end: 20110629
  11. SANDOSTATIN LAR [Suspect]
     Dosage: 30 MG, QMO
     Route: 030
     Dates: start: 20101004
  12. NICOTINE [Concomitant]
     Dosage: 1 DF, EVERY 24 HOURS
     Dates: start: 20110615
  13. ZOFRAN [Concomitant]
     Indication: NAUSEA
     Dosage: 1 DF, TID AS NEEDED
     Route: 042
     Dates: start: 20110615
  14. ATIVAN [Concomitant]
     Dosage: 1 DF, Q6H AS NEEDED
     Route: 048
     Dates: start: 20110615, end: 20110708
  15. LOVASTATIN [Concomitant]
     Dosage: 1 DF, BID
     Route: 048
     Dates: start: 20110301
  16. SYNTHROID [Concomitant]
     Dosage: 1 DF, DAILY
     Dates: start: 20090612
  17. DIPHENHYDRAMINE HCL [Concomitant]
     Dates: start: 20110629, end: 20110629
  18. SANDOSTATIN LAR [Suspect]
     Indication: ACROMEGALY
     Dosage: 30 MG, QMO
     Route: 030
     Dates: start: 20050101
  19. PARAPLATIN AQ [Concomitant]
     Route: 042
     Dates: start: 20110629, end: 20110629
  20. EMEND [Concomitant]
     Route: 042
     Dates: start: 20110629, end: 20110629
  21. PEPCID [Concomitant]
     Dates: start: 20110629
  22. DECADRON [Concomitant]
     Dosage: 20 MG, ONCE/SINGLE
     Route: 048
     Dates: start: 20110629
  23. BENADRYL [Concomitant]
     Route: 042
     Dates: start: 20110629, end: 20110629
  24. SODIUM CHLORIDE [Concomitant]
     Route: 042
     Dates: start: 20110629

REACTIONS (2)
  - CERVIX CANCER METASTATIC [None]
  - BLOOD PRESSURE DIASTOLIC DECREASED [None]
